FAERS Safety Report 13412274 (Version 1)
Quarter: 2017Q2

REPORT INFORMATION
  Report Type: Spontaneous
  Country: US (occurrence: US)
  Receive Date: 20170406
  Receipt Date: 20170406
  Transmission Date: 20170830
  Serious: No
  Sender: FDA-Public Use
  Company Number: US-JNJFOC-20151100578

PATIENT
  Sex: Male

DRUGS (2)
  1. RISPERDAL [Suspect]
     Active Substance: RISPERIDONE
     Indication: MENTAL DISORDER
     Route: 048
     Dates: start: 19990414, end: 20040213
  2. RISPERDAL [Suspect]
     Active Substance: RISPERIDONE
     Indication: MENTAL DISORDER
     Route: 048
     Dates: start: 1996, end: 2004

REACTIONS (3)
  - Emotional disorder [Unknown]
  - Gynaecomastia [Unknown]
  - Abnormal weight gain [Unknown]

NARRATIVE: CASE EVENT DATE: 1997
